FAERS Safety Report 13067112 (Version 1)
Quarter: 2016Q4

REPORT INFORMATION
  Report Type: Spontaneous
  Country: RU (occurrence: None)
  Receive Date: 20161227
  Receipt Date: 20161227
  Transmission Date: 20170207
  Serious: Yes (Hospitalization)
  Sender: FDA-Public Use
  Company Number: RU2016K8524SPO

PATIENT
  Age: 52 Year
  Sex: Female

DRUGS (3)
  1. NIPERTEN (BISOPROLOL FUMARATE) FILM-COATED TABLET [Suspect]
     Active Substance: BISOPROLOL FUMARATE
     Indication: PRODUCT USED FOR UNKNOWN INDICATION
  2. CONCOR (BISOPROLOL) [Suspect]
     Active Substance: BISOPROLOL
     Indication: PRODUCT USED FOR UNKNOWN INDICATION
  3. ENAP (ENALAPRIL) TABLET [Suspect]
     Active Substance: ENALAPRIL
     Indication: PRODUCT USED FOR UNKNOWN INDICATION

REACTIONS (4)
  - Nausea [None]
  - Dizziness [None]
  - Fatigue [None]
  - Hypotonia [None]

NARRATIVE: CASE EVENT DATE: 201609
